FAERS Safety Report 6518134-4 (Version None)
Quarter: 2009Q4

REPORT INFORMATION
  Report Type: 
  Country: None (occurrence: None)
  Receive Date: 20091223
  Receipt Date: 20091223
  Transmission Date: 20100525
  Serious: Yes (Hospitalization)
  Sender: FDA-Public Use
  Company Number: None

PATIENT
  Sex: Male
  Weight: 52.1637 kg

DRUGS (1)
  1. SUBOXONE [Suspect]
     Indication: SUBSTANCE ABUSE
     Dosage: PO
     Route: 048
     Dates: start: 20041222, end: 20041222

REACTIONS (3)
  - HYPERSENSITIVITY [None]
  - PRURITUS [None]
  - RASH GENERALISED [None]
